FAERS Safety Report 5720865-0 (Version None)
Quarter: 2008Q2

REPORT INFORMATION
  Report Type: 
  Country: None (occurrence: None)
  Receive Date: 20080429
  Receipt Date: 20080110
  Transmission Date: 20081010
  Serious: No
  Sender: FDA-Public Use
  Company Number: A0702450A

PATIENT
  Age: 65 Year
  Sex: Male

DRUGS (3)
  1. SEREVENT [Suspect]
     Indication: ASTHMA
     Dosage: 1PUFF ALTERNATE DAYS
     Route: 055
     Dates: start: 20020101
  2. COMBIVENT [Concomitant]
  3. SUDAFED 12 HOUR [Concomitant]

REACTIONS (1)
  - TOOTH DISCOLOURATION [None]
